FAERS Safety Report 20369216 (Version 1)
Quarter: 2022Q1

REPORT INFORMATION
  Report Type: Spontaneous
  Country: US (occurrence: None)
  Receive Date: 20220121
  Receipt Date: 20220121
  Transmission Date: 20220423
  Serious: Yes (Other)
  Sender: FDA-Public Use
  Company Number: None

PATIENT
  Age: 97 Year
  Sex: Female

DRUGS (4)
  1. TRIAMCINOLONE ACETONIDE [Suspect]
     Active Substance: TRIAMCINOLONE ACETONIDE
  2. Gadobutrol (GADAVIST) injection 1 mmol/ml [Concomitant]
  3. Flu vaccine (Flucelvax) [Concomitant]
  4. Pneumococcal polysaccharide vaccine 23-valent [Concomitant]

REACTIONS (3)
  - Cognitive disorder [None]
  - Disorientation [None]
  - Injection related reaction [None]

NARRATIVE: CASE EVENT DATE: 20211006
